FAERS Safety Report 16078373 (Version 1)
Quarter: 2019Q2

REPORT INFORMATION
  Report Type: Spontaneous
  Country: US (occurrence: US)
  Receive Date: 20190315
  Receipt Date: 20190315
  Transmission Date: 20190711
  Serious: Yes (Hospitalization, Other)
  Sender: FDA-Public Use
  Company Number: None

PATIENT
  Age: 69 Year
  Sex: Female
  Weight: 70.2 kg

DRUGS (1)
  1. AZITHROMYCIN ANHYDROUS. [Suspect]
     Active Substance: AZITHROMYCIN ANHYDROUS
     Indication: DENTAL DISORDER PROPHYLAXIS
     Route: 048
     Dates: start: 20170810, end: 20170812

REACTIONS (6)
  - Dyspnoea [None]
  - Fatigue [None]
  - Nausea [None]
  - Diarrhoea [None]
  - Chest pain [None]
  - Dizziness [None]

NARRATIVE: CASE EVENT DATE: 20170812
